FAERS Safety Report 26000811 (Version 1)
Quarter: 2025Q4

REPORT INFORMATION
  Report Type: Spontaneous
  Country: US (occurrence: US)
  Receive Date: 20251105
  Receipt Date: 20251105
  Transmission Date: 20260119
  Serious: No
  Sender: ANI
  Company Number: US-ANIPHARMA-2025-US-042926

PATIENT
  Age: 72 Year
  Sex: Female
  Weight: 63.5 kg

DRUGS (5)
  1. CORTICOTROPIN [Suspect]
     Active Substance: CORTICOTROPIN
     Indication: Systemic lupus erythematosus
     Dosage: ONE TIME A WEEK
     Route: 058
     Dates: start: 20250811, end: 20250825
  2. LOSARTAN [Concomitant]
     Active Substance: LOSARTAN
  3. LABETALOL [Concomitant]
     Active Substance: LABETALOL
  4. unspecified long acting insulin [Concomitant]
  5. unspecified short acting insulin [Concomitant]

REACTIONS (2)
  - Blood glucose increased [Recovered/Resolved]
  - Contraindicated product administered [Recovered/Resolved]

NARRATIVE: CASE EVENT DATE: 20250811
